FAERS Safety Report 4569552-5 (Version None)
Quarter: 2005Q1

REPORT INFORMATION
  Report Type: 
  Country: None (occurrence: None)
  Receive Date: 20050201
  Receipt Date: 20050124
  Transmission Date: 20050727
  Serious: Yes (Other)
  Sender: FDA-Public Use
  Company Number: MEDI-0002791

PATIENT
  Age: 16 Month
  Sex: Female

DRUGS (1)
  1. SYNAGIS (PALIVIZUMABZ) [Suspect]
     Indication: ANTIVIRAL PROPHYLAXIS
     Dosage: 1.31 ML, 1 IN 30 D, INTRAMUSCULAR
     Dates: start: 20041103, end: 20041220

REACTIONS (7)
  - BODY TEMPERATURE INCREASED [None]
  - HEART RATE INCREASED [None]
  - IRRITABILITY [None]
  - LETHARGY [None]
  - PRODUCTIVE COUGH [None]
  - RHINORRHOEA [None]
  - TREMOR [None]
